FAERS Safety Report 5357523-0 (Version None)
Quarter: 2007Q2

REPORT INFORMATION
  Report Type: 
  Country: None (occurrence: None)
  Receive Date: 20070614
  Receipt Date: 20070613
  Transmission Date: 20071010
  Serious: Yes (Life-Threatening, Hospitalization)
  Sender: FDA-Public Use
  Company Number: US-BRISTOL-MYERS SQUIBB COMPANY-13813902

PATIENT
  Age: 67 Year
  Sex: Female

DRUGS (1)
  1. CARDIOLITE INJ [Suspect]
     Dates: start: 20070613, end: 20070613

REACTIONS (1)
  - RESPIRATORY ARREST [None]
